FAERS Safety Report 7138809-6 (Version None)
Quarter: 2010Q4

REPORT INFORMATION
  Report Type: 
  Country: None (occurrence: None)
  Receive Date: 20101206
  Receipt Date: 20101123
  Transmission Date: 20110411
  Serious: Yes (Hospitalization)
  Sender: FDA-Public Use
  Company Number: US-ELI_LILLY_AND_COMPANY-US201011007251

PATIENT
  Sex: Male

DRUGS (2)
  1. HUMATROPE [Suspect]
     Indication: GROWTH HORMONE DEFICIENCY
     Dosage: UNK, UNK
  2. TESTOSTERONE [Concomitant]

REACTIONS (4)
  - BONE GRAFT [None]
  - PLASTIC SURGERY TO THE FACE [None]
  - SKIN GRAFT [None]
  - VASCULAR OPERATION [None]
